FAERS Safety Report 4325539-9 (Version None)
Quarter: 2004Q1

REPORT INFORMATION
  Report Type: 
  Country: None (occurrence: None)
  Receive Date: 20040324
  Receipt Date: 20040318
  Transmission Date: 20041129
  Serious: Yes (Other)
  Sender: FDA-Public Use
  Company Number: STA-AE-04-MTX-108

PATIENT
  Age: 54 Year
  Sex: Female

DRUGS (3)
  1. METHOTREXATE [Suspect]
     Indication: MULTIPLE SCLEROSIS
     Dosage: 7.5 MG 1X PER 1 WK
  2. AZATHIOPRINE [Suspect]
  3. FOLIC ACID [Concomitant]

REACTIONS (5)
  - ACTINIC KERATOSIS [None]
  - BASAL CELL CARCINOMA [None]
  - BREAST CANCER FEMALE [None]
  - SQUAMOUS CELL CARCINOMA OF SKIN [None]
  - SWEAT GLAND INFECTION [None]
